FAERS Safety Report 22370080 (Version 2)
Quarter: 2023Q2

REPORT INFORMATION
  Report Type: Spontaneous
  Country: EG (occurrence: EG)
  Receive Date: 20230526
  Receipt Date: 20230605
  Transmission Date: 20230722
  Serious: Yes (Hospitalization, Disabling, Other)
  Sender: FDA-Public Use
  Company Number: EG-NOVOPROD-1065211

PATIENT
  Age: 63 Year
  Sex: Male
  Weight: 95 kg

DRUGS (6)
  1. INSULIN HUMAN [Suspect]
     Active Substance: INSULIN HUMAN
     Dosage: DOSE INCREASED (UNK)
     Route: 058
  2. INSULIN HUMAN [Suspect]
     Active Substance: INSULIN HUMAN
     Indication: Type 1 diabetes mellitus
     Dosage: 60 IU, QD(40 IU AM + 20 IU PM)
     Route: 058
  3. ACTRAPID [Suspect]
     Active Substance: INSULIN HUMAN
     Dosage: DOSE INCREASED (UNK)
     Route: 058
  4. ACTRAPID [Suspect]
     Active Substance: INSULIN HUMAN
     Indication: Type 1 diabetes mellitus
     Dosage: 20 IU, QD(20 IU AT LUNCH)
     Route: 058
  5. BENFOTIAMINE\CYANOCOBALAMIN\PYRIDOXINE HYDROCHLORIDE [Concomitant]
     Active Substance: BENFOTIAMINE\CYANOCOBALAMIN\PYRIDOXINE HYDROCHLORIDE
     Indication: Neuropathy peripheral
     Dosage: ONCE DAILY AFTER BREAKFAST
     Route: 048
  6. CIDOPHAGE [Concomitant]
     Indication: Weight control
     Dosage: 500(ONCE BEFORE LUNCH )
     Route: 048

REACTIONS (3)
  - Diabetic foot [Not Recovered/Not Resolved]
  - Hyperglycaemia [Not Recovered/Not Resolved]
  - COVID-19 [Unknown]

NARRATIVE: CASE EVENT DATE: 20230101
